FAERS Safety Report 17938342 (Version 2)
Quarter: 2021Q1

REPORT INFORMATION
  Report Type: Spontaneous
  Country: PT (occurrence: PT)
  Receive Date: 20200624
  Receipt Date: 20210217
  Transmission Date: 20210419
  Serious: Yes (Hospitalization)
  Sender: FDA-Public Use
  Company Number: NVSC2020PT176023

PATIENT
  Age: 49 Year
  Sex: Male

DRUGS (5)
  1. PREDNISOLONE. [Concomitant]
     Active Substance: PREDNISOLONE
     Dosage: 1 MG/KG(CONTINUED AT THE TIME OF FOLLOW UP EXAMINATION AFTER 4 MONTHS)
     Route: 065
  2. COLCHICINE. [Concomitant]
     Active Substance: COLCHICINE
     Indication: OLIGOARTHRITIS
     Dosage: 1 MG
     Route: 065
  3. ALLOPURINOL. [Suspect]
     Active Substance: ALLOPURINOL
     Indication: OLIGOARTHRITIS
     Dosage: 100 MG
     Route: 065
  4. PREDNISOLONE. [Concomitant]
     Active Substance: PREDNISOLONE
     Indication: OLIGOARTHRITIS
     Dosage: 1 MG/KG
     Route: 065
  5. PREDNISOLONE. [Concomitant]
     Active Substance: PREDNISOLONE
     Dosage: 5 MG(LATER DISCONTINUED AND RESTARTED AFTER DISCONTINUATION OF ALLOPURINOL)
     Route: 065

REACTIONS (4)
  - Hypersensitivity myocarditis [Recovered/Resolved]
  - Atrioventricular block complete [Recovered/Resolved]
  - Type IV hypersensitivity reaction [Recovered/Resolved]
  - Drug reaction with eosinophilia and systemic symptoms [Recovered/Resolved]
